FAERS Safety Report 4990191-6 (Version None)
Quarter: 2006Q2

REPORT INFORMATION
  Report Type: 
  Country: None (occurrence: None)
  Receive Date: 20060503
  Receipt Date: 20060113
  Transmission Date: 20061013
  Serious: Yes (Hospitalization, Other)
  Sender: FDA-Public Use
  Company Number: US-MERCK-0601USA01805

PATIENT
  Age: 56 Year
  Sex: Female
  Weight: 104 kg

DRUGS (3)
  1. VIOXX [Suspect]
     Indication: OSTEOARTHRITIS
     Route: 048
     Dates: start: 19991101, end: 20030601
  2. VIOXX [Suspect]
     Indication: ARTHRITIS
     Route: 048
     Dates: start: 19991101, end: 20030601
  3. IBUPROFEN [Concomitant]
     Route: 065

REACTIONS (19)
  - CARDIAC FAILURE CONGESTIVE [None]
  - CAROTID ARTERY DISEASE [None]
  - CHEST PAIN [None]
  - DYSPEPSIA [None]
  - DYSPNOEA EXERTIONAL [None]
  - EXTRASYSTOLES [None]
  - GASTROENTERITIS VIRAL [None]
  - HYPERTENSIVE HEART DISEASE [None]
  - HYPOKALAEMIA [None]
  - HYPOTHYROIDISM [None]
  - MEMORY IMPAIRMENT [None]
  - MYOCARDIAL INFARCTION [None]
  - OEDEMA PERIPHERAL [None]
  - PALPITATIONS [None]
  - SCAN MYOCARDIAL PERFUSION ABNORMAL [None]
  - SENSORY DISTURBANCE [None]
  - SINUS BRADYCARDIA [None]
  - VISUAL DISTURBANCE [None]
  - WEIGHT INCREASED [None]
